FAERS Safety Report 17859890 (Version 2)
Quarter: 2020Q2

REPORT INFORMATION
  Report Type: Report from Study
  Country: HK (occurrence: HK)
  Receive Date: 20200604
  Receipt Date: 20200609
  Transmission Date: 20200714
  Serious: Yes (Death, Other)
  Sender: FDA-Public Use
  Company Number: HK-PFIZER INC-2020215472

PATIENT
  Age: 44 Year
  Sex: Female

DRUGS (2)
  1. HYDROCORTISONE SODIUM SUCCINATE [Suspect]
     Active Substance: HYDROCORTISONE SODIUM SUCCINATE
     Dosage: 4 MG/KG, 4X/DAY (EVERY 6 H)
  2. RIBAVIRIN. [Suspect]
     Active Substance: RIBAVIRIN
     Indication: CORONAVIRUS INFECTION
     Dosage: 4 MG/KG, 3X/DAY (EVERY 8 H)

REACTIONS (4)
  - Cardiac arrest [Fatal]
  - Drug ineffective for unapproved indication [Fatal]
  - Acute myocardial infarction [Fatal]
  - Off label use [Fatal]
